FAERS Safety Report 11115815 (Version 1)
Quarter: 2015Q2

REPORT INFORMATION
  Report Type: Spontaneous
  Country: US (occurrence: None)
  Receive Date: 20150514
  Receipt Date: 20150514
  Transmission Date: 20150821
  Serious: Yes (Death, Hospitalization)
  Sender: FDA-Public Use
  Company Number: None

PATIENT
  Age: 13 Year
  Sex: Female
  Weight: 88.3 kg

DRUGS (1)
  1. ONCASPAR [Suspect]
     Active Substance: PEGASPARGASE
     Dates: end: 20150328

REACTIONS (13)
  - Candida test positive [None]
  - Blood methaemoglobin present [None]
  - Hypovolaemia [None]
  - Bradycardia [None]
  - Enterobacter test positive [None]
  - Escherichia test positive [None]
  - Hypotension [None]
  - Acute lymphocytic leukaemia [None]
  - Pancytopenia [None]
  - Respiratory failure [None]
  - Device occlusion [None]
  - Cardiac arrest [None]
  - Sepsis [None]

NARRATIVE: CASE EVENT DATE: 20150501
